FAERS Safety Report 10221298 (Version 1)
Quarter: 2014Q2

REPORT INFORMATION
  Report Type: Spontaneous
  Country: US (occurrence: US)
  Receive Date: 20140606
  Receipt Date: 20140606
  Transmission Date: 20141212
  Serious: No
  Sender: FDA-Public Use
  Company Number: US-GLAXOSMITHKLINE-A1071200A

PATIENT
  Age: 77 Year
  Sex: Female

DRUGS (10)
  1. BREO ELLIPTA [Suspect]
     Indication: CHRONIC OBSTRUCTIVE PULMONARY DISEASE
     Dosage: 1PUFF PER DAY
     Route: 055
     Dates: start: 201404
  2. PLAQUENIL [Concomitant]
  3. OMEPRAZOLE [Concomitant]
  4. CARDIZEM [Concomitant]
  5. CALCIUM [Concomitant]
  6. POTASSIUM [Concomitant]
  7. XARELTO [Concomitant]
  8. LIPITOR [Concomitant]
  9. ASPIRIN [Concomitant]
  10. VITAMIN B3 [Concomitant]

REACTIONS (4)
  - Pain in extremity [Not Recovered/Not Resolved]
  - Muscular weakness [Unknown]
  - Fatigue [Unknown]
  - Peripheral swelling [Unknown]
